FAERS Safety Report 24143844 (Version 1)
Quarter: 2024Q3

REPORT INFORMATION
  Report Type: Spontaneous
  Country: NL (occurrence: NL)
  Receive Date: 20240727
  Receipt Date: 20240727
  Transmission Date: 20241016
  Serious: Yes (Hospitalization)
  Sender: TEVA
  Company Number: None

PATIENT
  Age: 85 Year
  Sex: Female
  Weight: 84.6 kg

DRUGS (14)
  1. SPIRONOLACTONE [Suspect]
     Active Substance: SPIRONOLACTONE
     Indication: Cardiac failure
     Dosage: 1DD, SPIRONOLACTONE/ BRAND NAME NOT SPECIFIED
     Route: 065
     Dates: start: 20240605, end: 20240614
  2. POLYETHYLENE GLYCOLS [Concomitant]
     Active Substance: POLYETHYLENE GLYCOLS
     Indication: Product used for unknown indication
     Dosage: DRINK, MACROGOL/SALTING DRINK / BRAND NAME NOT SPECIFIED
     Route: 065
  3. FUROSEMIDE [Suspect]
     Active Substance: FUROSEMIDE
     Indication: Cardiac failure
     Dosage: 2DD, FUROSEMIDE  / BRAND NAME NOT SPECIFIED
     Route: 065
     Dates: start: 20240601, end: 20240614
  4. PANTOPRAZOLE SODIUM [Concomitant]
     Active Substance: PANTOPRAZOLE SODIUM
     Indication: Product used for unknown indication
     Dosage: PANTOPRAZOLE / BRAND NAME NOT SPECIFIED
     Route: 065
  5. DAPAGLIFLOZIN [Concomitant]
     Active Substance: DAPAGLIFLOZIN
     Indication: Product used for unknown indication
     Dosage: DAPAGLIFLOZIN / BRAND NAME NOT SPECIFIED
     Route: 065
  6. CYANOCOBALAMIN [Concomitant]
     Active Substance: CYANOCOBALAMIN
     Indication: Product used for unknown indication
     Dosage: CYANOCOBALAMINE / BRAND NAME NOT SPECIFIED
     Route: 065
  7. DULOXETINE [Concomitant]
     Active Substance: DULOXETINE
     Indication: Product used for unknown indication
     Dosage: DULOXETINE CAPSULE MSR 30MG / BRAND NAME NOT SPECIFIED
     Route: 065
  8. SACUBITRIL\VALSARTAN [Concomitant]
     Active Substance: SACUBITRIL\VALSARTAN
     Indication: Product used for unknown indication
     Dosage: SACUBITRIL/VALSARTAN 24/26MG / BRAND NAME NOT SPECIFIED
     Route: 065
  9. PRAVASTATIN [Concomitant]
     Active Substance: PRAVASTATIN
     Indication: Product used for unknown indication
     Dosage: PRAVASTATINE / BRAND NAME NOT SPECIFIED
     Route: 065
  10. ACETAMINOPHEN [Concomitant]
     Active Substance: ACETAMINOPHEN
     Indication: Product used for unknown indication
     Dosage: PARACETAMOL / BRAND NAME NOT SPECIFIED
     Route: 065
  11. OXAZEPAM [Concomitant]
     Active Substance: OXAZEPAM
     Indication: Product used for unknown indication
     Dosage: OXAZEPAM / BRAND NAME NOT SPECIFIED
     Route: 065
  12. ISOSORBIDE MONONITRATE [Concomitant]
     Active Substance: ISOSORBIDE MONONITRATE
     Indication: Product used for unknown indication
     Dosage: ISOSORBIDE MONONITRATE TABLET MGA 30MG / BRAND NAME NOT SPECIFIED
     Route: 065
  13. APIXABAN [Concomitant]
     Active Substance: APIXABAN
     Indication: Product used for unknown indication
     Dosage: APIXABAN / BRAND NAME NOT SPECIFIED
     Route: 065
  14. CHOLECALCIFEROL [Concomitant]
     Active Substance: CHOLECALCIFEROL
     Indication: Product used for unknown indication
     Dosage: COLECALCIFEROL 5600IE / BRAND NAME NOT SPECIFIED
     Route: 065

REACTIONS (1)
  - Hypotension [Not Recovered/Not Resolved]
